FAERS Safety Report 18610995 (Version 1)
Quarter: 2020Q4

REPORT INFORMATION
  Report Type: Spontaneous
  Country: FR (occurrence: FR)
  Receive Date: 20201214
  Receipt Date: 20201214
  Transmission Date: 20210114
  Serious: Yes (Other)
  Sender: FDA-Public Use
  Company Number: FR-MYLANLABS-2020M1100670

PATIENT
  Age: 21 Year
  Sex: Female

DRUGS (2)
  1. PARACETAMOL [Suspect]
     Active Substance: ACETAMINOPHEN
     Indication: PRODUCT USED FOR UNKNOWN INDICATION
     Dosage: 1 DOSAGE FORM, TOTAL
     Route: 048
     Dates: start: 20191231, end: 20191231
  2. TRIAFEMI [Concomitant]
     Active Substance: ETHINYL ESTRADIOL\NORGESTREL
     Dosage: UNK

REACTIONS (4)
  - Analgesic drug level increased [Recovered/Resolved]
  - Toxicity to various agents [Recovered/Resolved]
  - Vomiting [Recovered/Resolved]
  - Suicide attempt [Unknown]

NARRATIVE: CASE EVENT DATE: 20191231
